FAERS Safety Report 11052026 (Version 2)
Quarter: 2015Q2

REPORT INFORMATION
  Report Type: Spontaneous
  Country: NL (occurrence: NL)
  Receive Date: 20150421
  Receipt Date: 20150501
  Transmission Date: 20150821
  Serious: Yes (Life-Threatening, Hospitalization)
  Sender: FDA-Public Use
  Company Number: NL-TEVA-555078ISR

PATIENT
  Age: 69 Year
  Sex: Male
  Weight: 100 kg

DRUGS (16)
  1. BISOPROLOL TABLET   5MG [Concomitant]
     Dosage: ONCE DAILY ONE PIECE
     Route: 048
  2. MICROLAX KLYSMA FLACON 5ML [Concomitant]
     Dosage: 5 ML DAILY; ONCE DAILY ONE PIECE
     Route: 048
  3. ALFUZOSINE TABLET MGA 10MG [Concomitant]
     Dosage: 10 MILLIGRAM DAILY; ONCE DAILY ONE PIECE
     Route: 048
     Dates: start: 20150129
  4. OMEPRAZOL CAPSULE MSR 20MG [Concomitant]
     Active Substance: OMEPRAZOLE
     Dosage: 20 MILLIGRAM DAILY; ONCE DAILY ONE PIECE
     Route: 048
  5. ONGLYZA TABLET 2,5MG [Concomitant]
     Dosage: 2.5 MILLIGRAM DAILY; ONCE DAILY ONE PIECE
     Route: 048
  6. ACETYLSALICYLZUUR/DIPYRIDAMOL CAPSULE MGA 25/200MG [Concomitant]
     Dosage: 1 DOSAGE FORMS DAILY; ONCE DAILY ONE PIECE
     Route: 048
  7. ZALDIAR TABLET FILMOMHULD [Concomitant]
     Dosage: EXTRA INFO:1-3 TIMES DAILY 1
     Route: 048
     Dates: start: 20150401
  8. METFORMIN [Suspect]
     Active Substance: METFORMIN HYDROCHLORIDE
     Indication: DIABETES MELLITUS
     Dosage: 2550 MILLIGRAM DAILY; 3 TIMES DAILY ONE PIECE
     Route: 048
     Dates: start: 2008
  9. NAPROXEN TABLET 500MG [Interacting]
     Active Substance: NAPROXEN
     Indication: BACK PAIN
     Route: 048
     Dates: start: 20150401, end: 20150406
  10. D-CURA DRANK  25000IE AMPUL 1ML [Concomitant]
     Dosage: ONCE MONTHLY TWO PIECES
     Route: 048
  11. OLMETEC HCTZ TABLET FILMOMHULD 20/12,5MG [Concomitant]
     Dosage: 1 DOSAGE FORMS DAILY; ONCE DAILY ONE PIECE
     Route: 048
  12. FOSTER AEROSOL 100/6MCG/DOSIS SPUITBUS 180DO [Concomitant]
     Dosage: 4 DOSAGE FORMS DAILY; TWICE DAILY TWO PIECES
     Route: 048
     Dates: start: 20150108
  13. GLIMEPIRIDE TABLET 1MG [Concomitant]
     Route: 048
     Dates: start: 20150219
  14. CYANOCOBALAMINE INJVLST 1MG/ML [Concomitant]
     Dosage: ONCE WEEKLY ONE PIECE
     Route: 065
  15. SIMVASTATINE TABLET FO 40MG [Concomitant]
     Dosage: 40 MILLIGRAM DAILY; ONCE DAILY ONE PIECE
     Route: 048
  16. AUGMENTIN TABLET 500/125MG [Concomitant]
     Dosage: 3 DOSAGE FORMS DAILY; 3 TIMES DAILY ONE PIECE
     Route: 048
     Dates: start: 20150405

REACTIONS (3)
  - Drug interaction [Recovering/Resolving]
  - Renal impairment [Recovering/Resolving]
  - Lactic acidosis [Recovering/Resolving]

NARRATIVE: CASE EVENT DATE: 20150406
